FAERS Safety Report 7940610-8 (Version None)
Quarter: 2011Q4

REPORT INFORMATION
  Report Type: 
  Country: None (occurrence: None)
  Receive Date: 20111114
  Receipt Date: 20110305
  Transmission Date: 20120403
  Serious: Yes (Death, Other)
  Sender: FDA-Public Use
  Company Number: 2011S1000154

PATIENT
  Age: 34 Year
  Sex: Male
  Weight: 70 kg

DRUGS (7)
  1. METRONIDAZOLE [Concomitant]
  2. CHEMOTHERAPEUTICS NOS [Concomitant]
  3. MICAFUNGIN [Concomitant]
  4. VANCOMYCIN [Concomitant]
  5. LEVOFLOXACIN [Concomitant]
  6. CUBICIN [Suspect]
     Indication: STAPHYLOCOCCAL BACTERAEMIA
     Dosage: 12 MG/KG; QD; IV
     Route: 042
  7. CUBICIN [Suspect]
     Indication: ENTEROCOCCAL BACTERAEMIA
     Dosage: 12 MG/KG; QD; IV
     Route: 042

REACTIONS (2)
  - BLOOD CREATINE PHOSPHOKINASE INCREASED [None]
  - FUNGAEMIA [None]
